FAERS Safety Report 23862151 (Version 1)
Quarter: 2024Q2

REPORT INFORMATION
  Report Type: Spontaneous
  Country: US (occurrence: US)
  Receive Date: 20240516
  Receipt Date: 20240516
  Transmission Date: 20240715
  Serious: Yes (Other)
  Sender: FDA-Public Use
  Company Number: None

PATIENT
  Sex: Female
  Weight: 70.75 kg

DRUGS (9)
  1. CLINDAMYCIN [Suspect]
     Active Substance: CLINDAMYCIN
     Indication: Product used for unknown indication
  2. DOXYCYCLINE HYCLATE [Suspect]
     Active Substance: DOXYCYCLINE HYCLATE
     Indication: Rosacea
     Dates: start: 20160414
  3. ADVIL [Suspect]
     Active Substance: IBUPROFEN
     Indication: Product used for unknown indication
  4. ZOSTAVAX [Suspect]
     Active Substance: VARICELLA-ZOSTER VIRUS STRAIN OKA/MERCK LIVE ANTIGEN
     Indication: Routine health maintenance
     Dosage: EXPIRATION DATE: 14-FEB-2011
     Route: 030
     Dates: start: 20100203
  5. CHLORPHENIRAMINE MALEATE [Suspect]
     Active Substance: CHLORPHENIRAMINE MALEATE
     Indication: Product used for unknown indication
  6. PSEUDOEPHEDRINE HYDROCHLORIDE [Suspect]
     Active Substance: PSEUDOEPHEDRINE HYDROCHLORIDE
     Indication: Product used for unknown indication
  7. METFORMIN HYDROCHLORIDE [Concomitant]
     Active Substance: METFORMIN HYDROCHLORIDE
     Indication: Diabetes mellitus
     Route: 048
     Dates: start: 2004
  8. INFLUENZA VIRUS VACCINE [Concomitant]
     Active Substance: INFLUENZA VIRUS VACCINE
     Indication: Prophylaxis
     Dates: start: 20100107, end: 20100107
  9. CALCIUM [Concomitant]
     Active Substance: CALCIUM
     Indication: Osteoarthritis
     Route: 048
     Dates: start: 1990

REACTIONS (23)
  - Cardiac disorder [Unknown]
  - Herpes zoster [Recovered/Resolved]
  - Atrial fibrillation [Unknown]
  - Hypothyroidism [Unknown]
  - Actinic keratosis [Unknown]
  - Eczema asteatotic [Unknown]
  - Dermatitis contact [Unknown]
  - Blood disorder [Unknown]
  - Rosacea [Unknown]
  - Skin exfoliation [Unknown]
  - Seasonal allergy [Unknown]
  - Dermatitis [Recovering/Resolving]
  - Depression [Unknown]
  - Dermatitis atopic [Unknown]
  - Acne [Unknown]
  - Eczema [Unknown]
  - Anxiety [Unknown]
  - Seborrhoeic dermatitis [Unknown]
  - Scar [Unknown]
  - Drug hypersensitivity [Unknown]
  - Pruritus [Unknown]
  - Pyrexia [Unknown]
  - Urticaria [Unknown]

NARRATIVE: CASE EVENT DATE: 20150901
